FAERS Safety Report 19308940 (Version 1)
Quarter: 2021Q2

REPORT INFORMATION
  Report Type: Other
  Country: US (occurrence: US)
  Receive Date: 20210526
  Receipt Date: 20210526
  Transmission Date: 20210717
  Serious: Yes (Other)
  Sender: FDA-Public Use
  Company Number: US-ROCHE-2833273

PATIENT
  Age: 73 Year
  Sex: Male

DRUGS (3)
  1. BETADINE [Concomitant]
     Active Substance: POVIDONE-IODINE
  2. BEVACIZUMAB. [Suspect]
     Active Substance: BEVACIZUMAB
     Indication: NEOVASCULAR AGE-RELATED MACULAR DEGENERATION
     Route: 050
  3. PROPARACAINE HYDROCHLORIDE. [Concomitant]
     Active Substance: PROPARACAINE HYDROCHLORIDE

REACTIONS (3)
  - Off label use [Unknown]
  - Eye infection bacterial [Recovering/Resolving]
  - Conjunctivitis [Recovered/Resolved]
